FAERS Safety Report 5766009-0 (Version None)
Quarter: 2008Q2

REPORT INFORMATION
  Report Type: 
  Country: None (occurrence: None)
  Receive Date: 20080611
  Receipt Date: 20080530
  Transmission Date: 20081010
  Serious: Yes (Hospitalization, Other)
  Sender: FDA-Public Use
  Company Number: US-PFIZER INC-2008046272

PATIENT
  Sex: Female
  Weight: 97.1 kg

DRUGS (3)
  1. CHANTIX [Suspect]
     Indication: SMOKING CESSATION THERAPY
     Dates: start: 20070201, end: 20071217
  2. EFFEXOR [Concomitant]
     Indication: DEPRESSION
  3. PROZAC [Concomitant]
     Indication: DEPRESSION

REACTIONS (8)
  - ALTERED STATE OF CONSCIOUSNESS [None]
  - BALANCE DISORDER [None]
  - CRYING [None]
  - DEPRESSION [None]
  - DIZZINESS [None]
  - FEELING ABNORMAL [None]
  - MOOD SWINGS [None]
  - SUICIDE ATTEMPT [None]
